FAERS Safety Report 24959059 (Version 1)
Quarter: 2025Q1

REPORT INFORMATION
  Report Type: Spontaneous
  Country: BR (occurrence: BR)
  Receive Date: 20250212
  Receipt Date: 20250212
  Transmission Date: 20250409
  Serious: Yes (Other)
  Sender: ASTELLAS
  Company Number: BR-ASTELLAS-2025-AER-007634

PATIENT
  Age: 76 Year
  Sex: Female

DRUGS (2)
  1. GILTERITINIB [Suspect]
     Active Substance: GILTERITINIB
     Indication: Acute myeloid leukaemia refractory
     Route: 065
  2. VENETOCLAX [Suspect]
     Active Substance: VENETOCLAX
     Indication: Product used for unknown indication
     Route: 065

REACTIONS (7)
  - Electrocardiogram QT prolonged [Unknown]
  - Pneumonia [Unknown]
  - Pyrexia [Unknown]
  - Leukocytosis [Unknown]
  - Soft tissue infection [Unknown]
  - Product use issue [Unknown]
  - Off label use [Unknown]
